FAERS Safety Report 10203569 (Version 1)
Quarter: 2014Q2

REPORT INFORMATION
  Report Type: Spontaneous
  Country: US (occurrence: US)
  Receive Date: 20140529
  Receipt Date: 20140529
  Transmission Date: 20141212
  Serious: No
  Sender: FDA-Public Use
  Company Number: US-MYLANLABS-2013S1013984

PATIENT
  Age: 89 Year
  Sex: Female
  Weight: 63.05 kg

DRUGS (2)
  1. ZOLPIDEM TARTRATE TABLETS [Suspect]
     Indication: SLEEP DISORDER
     Route: 048
     Dates: start: 20130623
  2. GABAPENTIN [Concomitant]
     Indication: NEUROPATHY PERIPHERAL
     Route: 048

REACTIONS (1)
  - Burning sensation [Recovered/Resolved]
